FAERS Safety Report 9478952 (Version 3)
Quarter: 2013Q4

REPORT INFORMATION
  Report Type: Spontaneous
  Country: US (occurrence: None)
  Receive Date: 20130823
  Receipt Date: 20131031
  Transmission Date: 20140711
  Serious: Yes (Other)
  Sender: FDA-Public Use
  Company Number: AUR-APL-2013-06886

PATIENT
  Age: 76 Year
  Sex: Female

DRUGS (4)
  1. VENLAFAXINE [Suspect]
     Indication: CATAPLEXY
  2. VENLAFAXINE [Suspect]
  3. OXYBATE SODIUM [Suspect]
     Indication: CATAPLEXY
  4. LISINOPRIL [Concomitant]

REACTIONS (12)
  - Cataplexy [None]
  - Vomiting [None]
  - Dysarthria [None]
  - Muscular weakness [None]
  - Emotional disorder [None]
  - Hallucination [None]
  - Drug ineffective [None]
  - Somnambulism [None]
  - Sleep-related eating disorder [None]
  - Fall [None]
  - Hypertension [None]
  - Withdrawal syndrome [None]
